FAERS Safety Report 24267778 (Version 1)
Quarter: 2024Q3

REPORT INFORMATION
  Report Type: Spontaneous
  Country: US (occurrence: US)
  Receive Date: 20240830
  Receipt Date: 20240830
  Transmission Date: 20241017
  Serious: No
  Sender: BRISTOL MYERS SQUIBB
  Company Number: US-BRISTOL-MYERS SQUIBB COMPANY-2024-138138

PATIENT
  Age: 73 Year
  Sex: Female

DRUGS (1)
  1. POMALYST [Suspect]
     Active Substance: POMALIDOMIDE
     Indication: Plasma cell myeloma recurrent
     Dosage: 7 DAYS ON AND 7 DAYS OFF
     Route: 048

REACTIONS (4)
  - Hypoaesthesia [Unknown]
  - Muscle spasms [Unknown]
  - Gait disturbance [Unknown]
  - Off label use [Unknown]
